FAERS Safety Report 22282777 (Version 2)
Quarter: 2024Q1

REPORT INFORMATION
  Report Type: Report from Study
  Country: AE (occurrence: None)
  Receive Date: 20230504
  Receipt Date: 20240312
  Transmission Date: 20240409
  Serious: Yes (Life-Threatening, Hospitalization)
  Sender: FDA-Public Use
  Company Number: 2023A102409

PATIENT
  Age: 52 Year
  Sex: Female
  Weight: 85.5 kg

DRUGS (9)
  1. CILGAVIMAB\TIXAGEVIMAB [Suspect]
     Active Substance: CILGAVIMAB\TIXAGEVIMAB
     Indication: Hyperkalaemia
     Route: 030
     Dates: start: 20221207
  2. LORLATINIB [Concomitant]
     Active Substance: LORLATINIB
     Indication: Lung neoplasm malignant
     Route: 048
     Dates: start: 202105
  3. XGEVA [Concomitant]
     Active Substance: DENOSUMAB
     Indication: Lung neoplasm malignant
     Route: 058
     Dates: start: 202201
  4. IBUPROFEN [Concomitant]
     Active Substance: IBUPROFEN
     Indication: Chest pain
     Route: 048
     Dates: start: 20220404
  5. CELEBREX [Concomitant]
     Active Substance: CELECOXIB
     Indication: Chest pain
     Route: 048
     Dates: start: 20221104
  6. RIVAROXABAN [Concomitant]
     Active Substance: RIVAROXABAN
     Indication: Pulmonary embolism
     Route: 048
     Dates: start: 20230310
  7. PEMETREXED [Concomitant]
     Active Substance: PEMETREXED
     Indication: Chemotherapy
     Route: 042
     Dates: start: 20230217
  8. CARBOPLATIN [Concomitant]
     Active Substance: CARBOPLATIN
     Indication: Chemotherapy
     Route: 042
     Dates: start: 20230217
  9. PEMBROLIZUMAB [Concomitant]
     Active Substance: PEMBROLIZUMAB
     Indication: Chemotherapy
     Route: 042
     Dates: start: 20230217

REACTIONS (1)
  - Pulmonary embolism [Recovered/Resolved]

NARRATIVE: CASE EVENT DATE: 20230217
